FAERS Safety Report 5159174-X (Version None)
Quarter: 2006Q4

REPORT INFORMATION
  Report Type: 
  Country: None (occurrence: None)
  Receive Date: 20061114
  Receipt Date: 20061106
  Transmission Date: 20070319
  Serious: Yes (Death, Life-Threatening, Hospitalization)
  Sender: FDA-Public Use
  Company Number: RB-4311-2006

PATIENT
  Sex: Male

DRUGS (1)
  1. SUBOXONE [Suspect]

REACTIONS (1)
  - DRUG WITHDRAWAL SYNDROME [None]
